FAERS Safety Report 12119395 (Version 1)
Quarter: 2016Q1

REPORT INFORMATION
  Report Type: Spontaneous
  Country: US (occurrence: US)
  Receive Date: 20160226
  Receipt Date: 20160226
  Transmission Date: 20160526
  Serious: No
  Sender: FDA-Public Use
  Company Number: US-009507513-1602USA011738

PATIENT
  Sex: Female

DRUGS (2)
  1. ZONTIVITY [Suspect]
     Active Substance: VORAPAXAR SULFATE
     Indication: PERIPHERAL ARTERIAL OCCLUSIVE DISEASE
     Dosage: 2.08 MG, ONCE A DAY
     Route: 048
  2. ASPIRIN. [Concomitant]
     Active Substance: ASPIRIN
     Dosage: UNK

REACTIONS (1)
  - Gastrointestinal haemorrhage [Unknown]
